FAERS Safety Report 4689416-6 (Version None)
Quarter: 2005Q2

REPORT INFORMATION
  Report Type: 
  Country: None (occurrence: None)
  Receive Date: 20050608
  Receipt Date: 20050413
  Transmission Date: 20051028
  Serious: No
  Sender: FDA-Public Use
  Company Number: 2005-BP-06335BP

PATIENT

DRUGS (1)
  1. SPIRIVA [Suspect]
     Dosage: 18 MCG, IH
     Route: 055

REACTIONS (2)
  - LYMPHADENOPATHY [None]
  - PHARYNGITIS [None]
